FAERS Safety Report 15743420 (Version 1)
Quarter: 2018Q4

REPORT INFORMATION
  Report Type: Spontaneous
  Country: GB (occurrence: GB)
  Receive Date: 20181220
  Receipt Date: 20181220
  Transmission Date: 20190205
  Serious: Yes (Hospitalization)
  Sender: FDA-Public Use
  Company Number: GB-ACCORD-096414

PATIENT
  Age: 61 Year
  Sex: Female

DRUGS (6)
  1. FUROSEMIDE. [Suspect]
     Active Substance: FUROSEMIDE
     Indication: PRODUCT USED FOR UNKNOWN INDICATION
     Dosage: MORNING.
  2. HYOSCINE [Concomitant]
     Active Substance: SCOPOLAMINE
  3. HYOSCINE BUTYLBROMIDE/METAMIZOLE SODIUM [Concomitant]
  4. MORPHINE [Concomitant]
     Active Substance: MORPHINE
     Route: 048
  5. OCTREOTIDE. [Concomitant]
     Active Substance: OCTREOTIDE
  6. MORPHINE [Concomitant]
     Active Substance: MORPHINE
     Dosage: 10MG/5ML 2.5-5ML TO BE TAKEN WHEN REQUIRED.
     Route: 048

REACTIONS (2)
  - Hypokalaemia [Unknown]
  - Abdominal pain [Unknown]
